FAERS Safety Report 9518819 (Version 2)
Quarter: 2014Q1

REPORT INFORMATION
  Report Type: Spontaneous
  Country: US (occurrence: None)
  Receive Date: 20130910
  Receipt Date: 20140107
  Transmission Date: 20141002
  Serious: Yes (Other)
  Sender: FDA-Public Use
  Company Number: AUR-APL-2013-07475

PATIENT
  Age: 61 Year
  Sex: Female

DRUGS (21)
  1. ATENOLOL (ATENOLOL) [Suspect]
     Indication: HYPERTENSION
     Dosage: 100 MG, 1 D, ORAL
     Route: 048
     Dates: start: 2003
  2. NEXIUM (ESOMEPRAZOLE MAGNESIUM) [Suspect]
     Indication: GASTROOESOPHAGEAL REFLUX DISEASE
     Dosage: 40 MG, 1 D, ORAL
     Route: 048
     Dates: end: 201306
  3. NEXIUM (ESOMEPRAZOLE MAGNESIUM) [Suspect]
     Indication: HIATUS HERNIA
     Dosage: 40 MG, 1 D, ORAL
     Route: 048
     Dates: end: 201306
  4. SEROQUEL (QUETIAPINE FUMARATE) [Suspect]
     Indication: PANIC ATTACK
     Dosage: 200 MG (200 MG, 1 IN 1 D, ORAL
     Route: 048
     Dates: end: 201207
  5. SEROQUEL (QUETIAPINE FUMARATE) [Suspect]
     Indication: STRESS
     Dosage: 200 MG (200 MG, 1 IN 1 D, ORAL
     Route: 048
     Dates: end: 201207
  6. SEROQUEL (QUETIAPINE FUMARATE) [Suspect]
     Indication: SLEEP DISORDER
     Dosage: 200 MG (200 MG, 1 IN 1 D, ORAL
     Route: 048
     Dates: end: 201207
  7. SEROQUEL (QUETIAPINE FUMARATE) [Suspect]
     Indication: DEPRESSION
     Dosage: 200 MG (200 MG, 1 IN 1 D, ORAL
     Route: 048
     Dates: end: 201207
  8. PRILOSEC (OMEPRAZOLE) [Suspect]
     Indication: PRODUCT USED FOR UNKNOWN INDICATION
     Route: 048
  9. PRILOSEC (OMEPRAZOLE) [Suspect]
     Indication: PRODUCT USED FOR UNKNOWN INDICATION
     Route: 048
  10. LISINOPRIL (LISINOPRIL) [Suspect]
     Indication: HYPERTENSION
     Dosage: 10 MG, 1 D, ORAL
     Route: 048
     Dates: start: 2003
  11. NYSTATIN (NYSTATIN) [Concomitant]
  12. LOSARTAN (LOSARTAN) [Concomitant]
  13. CETIRIZINE (CETIRIZINE) [Concomitant]
  14. SERTRALINE HYDROCHLORIDE (SERTRALINE HYDROCHLORIDE) [Concomitant]
  15. CLONAZEPAM (CLONAZEPAM) (CLONAZEPAM) [Concomitant]
  16. ASPIRIN (ACETYLSALICYLIC ACID) [Concomitant]
  17. AMIPTRIPTYLINE HYDROCHLORIDE (AMITRIPTYLINE HYDROCHLORIDE) [Concomitant]
  18. HYDROCHLOROTHIAZIDE (HYDROCHLOROTHIAZIDE) [Concomitant]
  19. MICARDIS (TELMISARTAN) [Concomitant]
  20. DIVALPROEX SODIUM (VALPROATE SEMISODIUM) [Concomitant]
  21. TUMS (TUMS) [Concomitant]

REACTIONS (40)
  - Wrist fracture [None]
  - Hand fracture [None]
  - Road traffic accident [None]
  - Anxiety [None]
  - Blood pressure decreased [None]
  - Urinary tract infection [None]
  - Nasal congestion [None]
  - Depression [None]
  - Headache [None]
  - Intertrigo [None]
  - Back pain [None]
  - Myalgia [None]
  - Rash [None]
  - Allergic sinusitis [None]
  - Dizziness [None]
  - Dysphagia [None]
  - Fall [None]
  - Drug ineffective [None]
  - Aphagia [None]
  - Pain [None]
  - Gastrooesophageal reflux disease [None]
  - Feeling abnormal [None]
  - Hallucination, auditory [None]
  - Panic attack [None]
  - Hypertension [None]
  - Head injury [None]
  - Vomiting [None]
  - Tooth fracture [None]
  - Loss of consciousness [None]
  - Loss of consciousness [None]
  - Weight decreased [None]
  - Weight decreased [None]
  - Insomnia [None]
  - Visual impairment [None]
  - Dyspepsia [None]
  - Fibromyalgia [None]
  - Panic attack [None]
  - Hyperventilation [None]
  - Stress [None]
  - Throat irritation [None]
